FAERS Safety Report 5461902-0 (Version None)
Quarter: 2007Q3

REPORT INFORMATION
  Report Type: 
  Country: None (occurrence: None)
  Receive Date: 20070920
  Receipt Date: 20070109
  Transmission Date: 20080115
  Serious: No
  Sender: FDA-Public Use
  Company Number: A0634657A

PATIENT
  Sex: Female

DRUGS (1)
  1. ABREVA [Suspect]

REACTIONS (4)
  - AURICULAR SWELLING [None]
  - EYE SWELLING [None]
  - INTENTIONAL DRUG MISUSE [None]
  - SWELLING FACE [None]
